FAERS Safety Report 7590563-X (Version None)
Quarter: 2011Q3

REPORT INFORMATION
  Report Type: 
  Country: None (occurrence: None)
  Receive Date: 20110705
  Receipt Date: 20110623
  Transmission Date: 20111222
  Serious: Yes (Hospitalization, Other)
  Sender: FDA-Public Use
  Company Number: US-ELI_LILLY_AND_COMPANY-US201103005382

PATIENT
  Sex: Female

DRUGS (7)
  1. ADVAIR DISKUS 100/50 [Concomitant]
  2. FORTEO [Suspect]
     Indication: OSTEOPOROSIS
     Dosage: 20 UG, QD
     Dates: start: 20100901
  3. FORTEO [Suspect]
     Dosage: 20 UG, QD
  4. DILTIAZEM [Concomitant]
     Dosage: 120 MG, QD
  5. COMBIVENT [Concomitant]
  6. SINGULAIR [Concomitant]
  7. ALBUTEROL SULFATE AUTOHALER [Concomitant]

REACTIONS (8)
  - CARDIAC VALVE DISEASE [None]
  - SCOLIOSIS [None]
  - SPINAL COMPRESSION FRACTURE [None]
  - DELAYED RECOVERY FROM ANAESTHESIA [None]
  - HYPOAESTHESIA [None]
  - INJECTION SITE PAIN [None]
  - CHEST DISCOMFORT [None]
  - DYSPNOEA [None]
